FAERS Safety Report 5036645-8 (Version None)
Quarter: 2006Q2

REPORT INFORMATION
  Report Type: 
  Country: None (occurrence: None)
  Receive Date: 20060601
  Receipt Date: 20060407
  Transmission Date: 20061013
  Serious: No
  Sender: FDA-Public Use
  Company Number: US200604001504

PATIENT
  Sex: Female

DRUGS (3)
  1. CYMBALTA [Suspect]
     Indication: ANXIETY
     Dosage: 120 MG
     Dates: start: 20050401
  2. BUSPAR [Concomitant]
  3. ZOLOFT [Concomitant]

REACTIONS (4)
  - FATIGUE [None]
  - MUSCLE TWITCHING [None]
  - TONGUE BITING [None]
  - TREMOR [None]
